FAERS Safety Report 10673709 (Version 1)
Quarter: 2014Q4

REPORT INFORMATION
  Report Type: Spontaneous
  Country: IL (occurrence: None)
  Receive Date: 20141222
  Receipt Date: 20141222
  Transmission Date: 20150529
  Serious: Yes (Hospitalization)
  Sender: FDA-Public Use
  Company Number: ABR_01897_2014

PATIENT
  Age: 60 Year
  Sex: Female

DRUGS (5)
  1. CARBAMAZEPINE(CARBAZEPINE) [Suspect]
     Active Substance: CARBAMAZEPINE
  2. VALPROATE [Suspect]
     Active Substance: VALPROIC ACID
     Indication: TEMPORAL LOBE EPILEPSY
     Dosage: 250 MG BID, DF
  3. LAMOTRIGINE(LAMOTRIGINE [Suspect]
     Active Substance: LAMOTRIGINE
     Indication: TEMPORAL LOBE EPILEPSY
     Dosage: DAILY; SLOW, GRADUAL INCREASE IN THE DOAGE)
  4. PREDNISONE. [Concomitant]
     Active Substance: PREDNISONE
  5. CHLORPHENIRAMINE MALEATE. [Concomitant]
     Active Substance: CHLORPHENIRAMINE MALEATE

REACTIONS (8)
  - Thrombocytopenia [None]
  - Drug hypersensitivity [None]
  - Insomnia [None]
  - Temporal lobe epilepsy [None]
  - Hashimoto^s encephalopathy [None]
  - Cognitive disorder [None]
  - Agitation [None]
  - Dissociation [None]
